FAERS Safety Report 5683515-8 (Version None)
Quarter: 2008Q1

REPORT INFORMATION
  Report Type: 
  Country: None (occurrence: None)
  Receive Date: 20080326
  Receipt Date: 20060911
  Transmission Date: 20080703
  Serious: Yes (Hospitalization)
  Sender: FDA-Public Use
  Company Number: 2008PL000033

PATIENT
  Age: 19 Year
  Sex: Female
  Weight: 56.246 kg

DRUGS (15)
  1. IMURAN [Suspect]
     Indication: CROHN'S DISEASE
     Dosage: 2.5 MG/KG; QD; PO
     Route: 048
     Dates: start: 20060527, end: 20060607
  2. PLACEBO [Suspect]
     Indication: CROHN'S DISEASE
     Dosage: 28 ML; IV
     Route: 042
     Dates: start: 20060526
  3. PLACEBO [Suspect]
     Indication: CROHN'S DISEASE
     Dosage: 28 ML; IV
     Route: 042
     Dates: start: 20060627
  4. YASMIN [Concomitant]
  5. LEXAPRO [Concomitant]
  6. ENTOCORT EC [Concomitant]
  7. PROPACET 100 [Concomitant]
  8. CLARITIN [Concomitant]
  9. BENTYL [Concomitant]
  10. TYLENOL (CAPLET) [Concomitant]
  11. ADVIL [Concomitant]
  12. KLONOPIN [Concomitant]
  13. VERSED [Concomitant]
  14. DEMEROL [Concomitant]
  15. PROMETHAZINE HCL [Concomitant]

REACTIONS (10)
  - BODY TEMPERATURE INCREASED [None]
  - DUODENAL ULCER [None]
  - DUODENITIS [None]
  - GASTRITIS [None]
  - GASTROENTERITIS VIRAL [None]
  - HAEMATEMESIS [None]
  - NAUSEA [None]
  - TREATMENT NONCOMPLIANCE [None]
  - URINARY TRACT INFECTION [None]
  - VOMITING [None]
